FAERS Safety Report 8837617 (Version 1)
Quarter: 2012Q4

REPORT INFORMATION
  Report Type: Report from Study
  Country: FR (occurrence: FR)
  Receive Date: 20121012
  Receipt Date: 20121012
  Transmission Date: 20130627
  Serious: Yes (Death, Life-Threatening, Hospitalization)
  Sender: FDA-Public Use
  Company Number: FR-ROCHE-1139173

PATIENT
  Age: 80 Year
  Sex: Female
  Weight: 49 kg

DRUGS (14)
  1. ROACTEMRA [Suspect]
     Indication: RHEUMATOID ARTHRITIS
     Route: 065
     Dates: start: 20110907
  2. ROACTEMRA [Suspect]
     Route: 065
     Dates: start: 20111005
  3. ROACTEMRA [Suspect]
     Route: 065
     Dates: start: 20111110
  4. ROACTEMRA [Suspect]
     Route: 065
     Dates: start: 20111212
  5. CORTANCYL [Concomitant]
     Route: 065
     Dates: start: 1993
  6. COVERSYL [Concomitant]
     Route: 065
  7. VERAPAMIL [Concomitant]
     Route: 065
  8. ASASANTINE [Concomitant]
     Route: 065
  9. PARIET [Concomitant]
     Route: 065
  10. ALDACTAZINE [Concomitant]
     Route: 065
  11. EZETROL [Concomitant]
     Route: 065
  12. MOTILIUM (FRANCE) [Concomitant]
     Route: 065
  13. CYMBALTA [Concomitant]
     Route: 065
  14. STILNOX [Concomitant]
     Route: 065

REACTIONS (4)
  - Death [Fatal]
  - Fall [Unknown]
  - Hip fracture [Not Recovered/Not Resolved]
  - General physical health deterioration [Not Recovered/Not Resolved]
